FAERS Safety Report 8541247-2 (Version None)
Quarter: 2012Q3

REPORT INFORMATION
  Report Type: 
  Country: None (occurrence: None)
  Receive Date: 20120726
  Receipt Date: 20120717
  Transmission Date: 20120928
  Serious: Yes (Hospitalization, Other)
  Sender: FDA-Public Use
  Company Number: JP-ELI_LILLY_AND_COMPANY-JP201207002082

PATIENT
  Age: 82 Year
  Sex: Female

DRUGS (1)
  1. FORTEO [Suspect]
     Route: 058

REACTIONS (10)
  - GAIT DISTURBANCE [None]
  - HYPOAESTHESIA [None]
  - TONGUE DRY [None]
  - THIRST [None]
  - FRACTURE PAIN [None]
  - DECREASED APPETITE [None]
  - HEADACHE [None]
  - SPINAL COLUMN STENOSIS [None]
  - CONSTIPATION [None]
  - PALPITATIONS [None]
